FAERS Safety Report 24029714 (Version 1)
Quarter: 2024Q2

REPORT INFORMATION
  Report Type: Spontaneous
  Country: BR (occurrence: BR)
  Receive Date: 20240628
  Receipt Date: 20240628
  Transmission Date: 20240716
  Serious: No
  Sender: FDA-Public Use
  Company Number: BR-JNJFOC-20240653425

PATIENT
  Age: 49 Year
  Sex: Female
  Weight: 45 kg

DRUGS (1)
  1. SIMPONI [Suspect]
     Active Substance: GOLIMUMAB
     Indication: Ankylosing spondylitis
     Dosage: STRENGTH: 50.00 MG / 0.50 ML
     Route: 058
     Dates: start: 2023

REACTIONS (4)
  - Device failure [Unknown]
  - Product dose omission issue [Unknown]
  - Pain [Unknown]
  - Weight decreased [Unknown]

NARRATIVE: CASE EVENT DATE: 20240514
